FAERS Safety Report 9481310 (Version 2)
Quarter: 2013Q3

REPORT INFORMATION
  Report Type: Spontaneous
  Country: US (occurrence: US)
  Receive Date: 20130828
  Receipt Date: 20130828
  Transmission Date: 20140515
  Serious: Yes (Other)
  Sender: FDA-Public Use
  Company Number: US-AMGEN-KDL158334

PATIENT
  Age: 67 Year
  Sex: Female

DRUGS (7)
  1. ENBREL [Suspect]
     Indication: RHEUMATOID ARTHRITIS
     Dosage: 50 MG, QWK
     Route: 058
     Dates: start: 20041201
  2. METHOTREXATE [Concomitant]
     Dosage: 2.5 MG, QWK
     Route: 048
     Dates: start: 20050201
  3. FOLIC ACID [Concomitant]
  4. ATENOLOL [Concomitant]
  5. AMLODIPINE BESILATE [Concomitant]
  6. LORSARTAN POTASSIUM HYDROCHLORIDE [Concomitant]
  7. ASPIRIN [Concomitant]

REACTIONS (1)
  - Herpes zoster [Unknown]
